FAERS Safety Report 25393729 (Version 1)
Quarter: 2025Q2

REPORT INFORMATION
  Report Type: Spontaneous
  Country: US (occurrence: US)
  Receive Date: 20250604
  Receipt Date: 20250604
  Transmission Date: 20250716
  Serious: No
  Sender: ELI LILLY AND COMPANY
  Company Number: US-ELI_LILLY_AND_COMPANY-US202506001945

PATIENT
  Age: 46 Year
  Sex: Male

DRUGS (1)
  1. HUMALOG [Suspect]
     Active Substance: INSULIN LISPRO
     Indication: Type 1 diabetes mellitus
     Route: 065
     Dates: end: 20250531

REACTIONS (7)
  - Blood glucose abnormal [Recovering/Resolving]
  - Glycosylated haemoglobin abnormal [Unknown]
  - Hyperhidrosis [Recovering/Resolving]
  - Blood pressure increased [Unknown]
  - Nausea [Recovering/Resolving]
  - Headache [Unknown]
  - Injection site pain [Unknown]

NARRATIVE: CASE EVENT DATE: 20250506
